FAERS Safety Report 15490305 (Version 2)
Quarter: 2018Q4

REPORT INFORMATION
  Report Type: Spontaneous
  Country: US (occurrence: US)
  Receive Date: 20181011
  Receipt Date: 20181105
  Transmission Date: 20190205
  Serious: Yes (Other)
  Sender: FDA-Public Use
  Company Number: US-PFIZER INC-2018408651

PATIENT
  Age: 55 Year
  Sex: Female
  Weight: 52.61 kg

DRUGS (4)
  1. ZOMETA [Concomitant]
     Active Substance: ZOLEDRONIC ACID
     Dosage: UNK
  2. LANREOTIDE [Concomitant]
     Active Substance: LANREOTIDE
     Dosage: UNK
  3. TURMERIC CURCUMIN [Concomitant]
     Active Substance: HERBALS\TURMERIC
     Dosage: UNK
  4. SUTENT [Suspect]
     Active Substance: SUNITINIB MALATE
     Indication: PANCREATIC NEUROENDOCRINE TUMOUR
     Dosage: 37.5 MG, CYCLIC (28 DAYS ON / 14 DAYS OFF)
     Dates: start: 20180822

REACTIONS (3)
  - Blood pressure increased [Unknown]
  - Ageusia [Unknown]
  - Fatigue [Unknown]
